FAERS Safety Report 9478322 (Version 1)
Quarter: 2013Q3

REPORT INFORMATION
  Report Type: Spontaneous
  Country: FR (occurrence: FR)
  Receive Date: 20130827
  Receipt Date: 20130827
  Transmission Date: 20140515
  Serious: Yes (Death)
  Sender: FDA-Public Use
  Company Number: FR-PFIZER INC-2013242194

PATIENT
  Age: 66 Year
  Sex: Female

DRUGS (1)
  1. CRIZOTINIB [Suspect]
     Dosage: UNK
     Dates: start: 20130108, end: 20130121

REACTIONS (1)
  - Death [Fatal]
